FAERS Safety Report 7337978-2 (Version None)
Quarter: 2011Q1

REPORT INFORMATION
  Report Type: 
  Country: None (occurrence: None)
  Receive Date: 20110303
  Receipt Date: 20110303
  Transmission Date: 20110831
  Serious: Yes (Death, Life-Threatening, Hospitalization)
  Sender: FDA-Public Use
  Company Number: None

PATIENT
  Age: 60 Year
  Sex: Male
  Weight: 96.8 kg

DRUGS (2)
  1. SIMVASTATIN [Suspect]
     Indication: ACUTE MYOCARDIAL INFARCTION
     Dosage: 40 MG AT BEDTIME PO
     Route: 048
     Dates: start: 20100816, end: 20110207
  2. SIMVASTATIN [Suspect]
     Indication: HYPERLIPIDAEMIA
     Dosage: 40 MG AT BEDTIME PO
     Route: 048
     Dates: start: 20100816, end: 20110207

REACTIONS (20)
  - ACUTE MYOCARDIAL INFARCTION [None]
  - HYPERKALAEMIA [None]
  - RESPIRATORY DEPRESSION [None]
  - MUSCULAR WEAKNESS [None]
  - PAIN IN EXTREMITY [None]
  - LACTIC ACIDOSIS [None]
  - ABDOMINAL PAIN [None]
  - TROPONIN INCREASED [None]
  - ASPARTATE AMINOTRANSFERASE INCREASED [None]
  - HYPOAESTHESIA [None]
  - DIALYSIS [None]
  - MYALGIA [None]
  - RENAL FAILURE ACUTE [None]
  - ALANINE AMINOTRANSFERASE INCREASED [None]
  - RHABDOMYOLYSIS [None]
  - HYPOTENSION [None]
  - INTESTINAL ISCHAEMIA [None]
  - PULSELESS ELECTRICAL ACTIVITY [None]
  - HYPERPHOSPHATAEMIA [None]
  - BLOOD BILIRUBIN INCREASED [None]
